FAERS Safety Report 7712664-5 (Version None)
Quarter: 2011Q3

REPORT INFORMATION
  Report Type: 
  Country: None (occurrence: None)
  Receive Date: 20110826
  Receipt Date: 20110817
  Transmission Date: 20111222
  Serious: Yes (Hospitalization, Other)
  Sender: FDA-Public Use
  Company Number: US-MERCK-1103USA02687

PATIENT
  Age: 65 Year
  Sex: Female
  Weight: 79 kg

DRUGS (9)
  1. FOSAMAX [Suspect]
     Indication: OSTEOPOROSIS
     Route: 048
     Dates: start: 20000422
  2. FOSAMAX PLUS D [Suspect]
     Indication: PROPHYLAXIS
     Route: 048
  3. ALENDRONATE SODIUM [Suspect]
     Indication: PROPHYLAXIS
     Route: 048
     Dates: start: 20080707, end: 20091101
  4. VITAMIN E [Concomitant]
     Route: 065
  5. VITAMIN D (UNSPECIFIED) [Concomitant]
     Route: 065
  6. CORTICOSTEROIDS (UNSPECIFIED) [Concomitant]
     Route: 065
  7. ALENDRONATE SODIUM [Suspect]
     Indication: OSTEOPOROSIS
     Route: 048
     Dates: start: 20080707, end: 20091101
  8. CALCIUM (UNSPECIFIED) [Concomitant]
     Route: 065
     Dates: start: 20060101
  9. FOSAMAX [Suspect]
     Indication: PROPHYLAXIS
     Route: 048
     Dates: start: 20000422

REACTIONS (56)
  - CONSTIPATION [None]
  - BREAST CANCER IN SITU [None]
  - POST LAMINECTOMY SYNDROME [None]
  - DENTAL CARIES [None]
  - BACK PAIN [None]
  - INTERVERTEBRAL DISC PROTRUSION [None]
  - HYPOTHYROIDISM [None]
  - MUSCLE SPASMS [None]
  - BURSITIS [None]
  - OBESITY [None]
  - FEMUR FRACTURE [None]
  - FALL [None]
  - BLOOD CHOLESTEROL INCREASED [None]
  - INTERVERTEBRAL DISC DISORDER [None]
  - TOOTH FRACTURE [None]
  - OEDEMA PERIPHERAL [None]
  - HYPERLIPIDAEMIA [None]
  - CAROTID BRUIT [None]
  - ARTHROPATHY [None]
  - CARDIAC DISORDER [None]
  - DIABETES MELLITUS [None]
  - MUSCULAR WEAKNESS [None]
  - TOOTH DISORDER [None]
  - GLUCOSE TOLERANCE IMPAIRED [None]
  - INTERMITTENT CLAUDICATION [None]
  - BREAST DISORDER [None]
  - ARTHRITIS [None]
  - OSTEOARTHRITIS [None]
  - MYOSITIS [None]
  - SWELLING [None]
  - CHOLELITHIASIS [None]
  - UTERINE DISORDER [None]
  - LUMBAR SPINAL STENOSIS [None]
  - CHEST PAIN [None]
  - DILATATION ATRIAL [None]
  - VERTEBRAL FORAMINAL STENOSIS [None]
  - PULMONARY HYPERTENSION [None]
  - ANXIETY [None]
  - DEPRESSION [None]
  - ISCHAEMIA [None]
  - GASTRITIS [None]
  - FLUID RETENTION [None]
  - BACK DISORDER [None]
  - CHRONIC SINUSITIS [None]
  - LEFT VENTRICULAR HYPERTROPHY [None]
  - JOINT INJURY [None]
  - ARTHRALGIA [None]
  - PERONEAL NERVE PALSY [None]
  - SPINAL OSTEOARTHRITIS [None]
  - GASTROOESOPHAGEAL REFLUX DISEASE [None]
  - INTERVERTEBRAL DISC DEGENERATION [None]
  - TRICUSPID VALVE INCOMPETENCE [None]
  - RADICULOPATHY [None]
  - HYPOAESTHESIA [None]
  - GOUT [None]
  - HYPERTENSION [None]
